FAERS Safety Report 23284631 (Version 1)
Quarter: 2023Q4

REPORT INFORMATION
  Report Type: Spontaneous
  Country: AR (occurrence: AR)
  Receive Date: 20231211
  Receipt Date: 20231211
  Transmission Date: 20240109
  Serious: Yes (Hospitalization)
  Sender: FDA-Public Use
  Company Number: AR-BIOMARINAP-AR-2023-154297

PATIENT

DRUGS (1)
  1. VOXZOGO [Suspect]
     Active Substance: VOSORITIDE
     Indication: Osteochondrodysplasia
     Dosage: 0.4 MILLILITER, QD
     Route: 058
     Dates: start: 20230424

REACTIONS (6)
  - Tonsillar inflammation [Recovered/Resolved]
  - Adenoiditis [Recovered/Resolved]
  - Tonsillar hypertrophy [Recovered/Resolved]
  - Adenoidal hypertrophy [Recovered/Resolved]
  - Pyrexia [Recovered/Resolved]
  - Vomiting [Recovered/Resolved]

NARRATIVE: CASE EVENT DATE: 20231128
